FAERS Safety Report 9572130 (Version 3)
Quarter: 2013Q4

REPORT INFORMATION
  Report Type: Spontaneous
  Country: ES (occurrence: None)
  Receive Date: 20130927
  Receipt Date: 20131213
  Transmission Date: 20140711
  Serious: Yes (Life-Threatening, Other)
  Sender: FDA-Public Use
  Company Number: 2013ES002526

PATIENT
  Age: 70 Year
  Sex: Male
  Weight: 66 kg

DRUGS (7)
  1. PONATINIB [Suspect]
     Indication: CHRONIC MYELOID LEUKAEMIA
     Route: 048
     Dates: start: 20130820, end: 20130917
  2. OMEPRAZOLE ( OMEPRAZOLE) [Concomitant]
  3. ALLOPURINOL [Concomitant]
  4. COLCHICINE ( COLCHICINE) [Concomitant]
  5. PARACETAMOL (PARACETAMOL) [Concomitant]
  6. DUPHALAC (LACTULOSE) [Concomitant]
  7. DACORTIN (PREDNISONE) [Concomitant]

REACTIONS (4)
  - Platelet count decreased [None]
  - Neutropenia [None]
  - Aplasia [None]
  - Condition aggravated [None]
